FAERS Safety Report 12001108 (Version 1)
Quarter: 2016Q1

REPORT INFORMATION
  Report Type: Spontaneous
  Country: US (occurrence: US)
  Receive Date: 20160204
  Receipt Date: 20160204
  Transmission Date: 20160526
  Serious: Yes (Hospitalization)
  Sender: FDA-Public Use
  Company Number: US-ACORDA-ACO_120950_2016

PATIENT
  Sex: Female

DRUGS (1)
  1. AMPYRA [Suspect]
     Active Substance: DALFAMPRIDINE
     Indication: GAIT DISTURBANCE
     Dosage: 10 MG, QD
     Route: 048
     Dates: start: 2011, end: 2012

REACTIONS (6)
  - Blood calcium decreased [Unknown]
  - Fall [Unknown]
  - Inappropriate schedule of drug administration [Unknown]
  - Clavicle fracture [Unknown]
  - Ankle fracture [Unknown]
  - Off label use [Unknown]

NARRATIVE: CASE EVENT DATE: 2011
